FAERS Safety Report 18536569 (Version 1)
Quarter: 2020Q4

REPORT INFORMATION
  Report Type: Spontaneous
  Country: US (occurrence: US)
  Receive Date: 20201124
  Receipt Date: 20201124
  Transmission Date: 20210114
  Serious: Yes (Other)
  Sender: FDA-Public Use
  Company Number: US-BEH-2020125044

PATIENT
  Age: 28 Year
  Sex: Female

DRUGS (2)
  1. HAEGARDA [Suspect]
     Active Substance: HUMAN C1-ESTERASE INHIBITOR
     Indication: PROPHYLAXIS
     Dosage: 6000 INTERNATIONAL UNIT, TOT
     Route: 058
     Dates: start: 20201106, end: 20201106
  2. HAEGARDA [Suspect]
     Active Substance: HUMAN C1-ESTERASE INHIBITOR
     Indication: HEREDITARY ANGIOEDEMA
     Dosage: 6000 INTERNATIONAL UNIT, BIW
     Route: 058
     Dates: start: 20200623

REACTIONS (5)
  - Injection site vesicles [Unknown]
  - Injection site warmth [Recovered/Resolved]
  - Hereditary angioedema [Unknown]
  - Nausea [Unknown]
  - Disorientation [Unknown]

NARRATIVE: CASE EVENT DATE: 202010
